FAERS Safety Report 23424893 (Version 1)
Quarter: 2024Q1

REPORT INFORMATION
  Report Type: Spontaneous
  Country: US (occurrence: US)
  Receive Date: 20240121
  Receipt Date: 20240121
  Transmission Date: 20240410
  Serious: Yes (Other)
  Sender: FDA-Public Use
  Company Number: US-AUROBINDO-AUR-APL-2024-001973

PATIENT
  Age: 56 Year
  Sex: Female

DRUGS (12)
  1. ESCITALOPRAM [Suspect]
     Active Substance: ESCITALOPRAM OXALATE
     Indication: Nerve injury
     Dosage: 10 MILLIGRAM
     Route: 065
     Dates: start: 202206
  2. GABAPENTIN [Suspect]
     Active Substance: GABAPENTIN
     Indication: Nerve injury
     Dosage: 300 MILLIGRAM
     Route: 065
     Dates: start: 2022
  3. QUETIAPINE [Suspect]
     Active Substance: QUETIAPINE
     Indication: Sleep disorder
     Dosage: 2 TABLETS, AT NIGHT
     Route: 065
     Dates: start: 2022
  4. ARIPIPRAZOLE [Concomitant]
     Active Substance: ARIPIPRAZOLE
     Indication: Product used for unknown indication
     Dosage: 15 MILLIGRAM
     Route: 065
     Dates: start: 2022
  5. ARIPIPRAZOLE [Concomitant]
     Active Substance: ARIPIPRAZOLE
     Dosage: 5 MILLIGRAM
     Route: 065
     Dates: start: 2022
  6. CYCLOBENZAPRINE [Concomitant]
     Active Substance: CYCLOBENZAPRINE
     Indication: Product used for unknown indication
     Dosage: UNK
     Route: 065
  7. DIVALPROEX SODIUM [Concomitant]
     Active Substance: DIVALPROEX SODIUM
     Indication: Product used for unknown indication
     Dosage: 500MG TWICE A DAY
     Route: 048
     Dates: start: 2022
  8. ESCITALOPRAM [Concomitant]
     Active Substance: ESCITALOPRAM OXALATE
     Indication: Product used for unknown indication
     Dosage: 10 MILLIGRAM, ONCE A DAY
     Route: 065
  9. FLUOXETINE [Concomitant]
     Active Substance: FLUOXETINE HYDROCHLORIDE
     Indication: Product used for unknown indication
     Dosage: UNK
     Route: 065
     Dates: start: 2022
  10. PHENTERMINE HYDROCHLORIDE [Concomitant]
     Active Substance: PHENTERMINE HYDROCHLORIDE
     Indication: Weight increased
     Dosage: 20MG ONCE A DAY
     Route: 065
     Dates: start: 2022
  11. QUETIAPINE [Concomitant]
     Active Substance: QUETIAPINE
     Indication: Sleep disorder
     Dosage: 02 TABLETS AT NIGHT
     Route: 065
     Dates: start: 2022
  12. ZIPRASIDONE HYDROCHLORIDE [Concomitant]
     Active Substance: ZIPRASIDONE HYDROCHLORIDE
     Indication: Product used for unknown indication
     Dosage: 80MG ONCE A DAY
     Route: 065

REACTIONS (21)
  - Cerebral disorder [Unknown]
  - Cognitive disorder [Unknown]
  - Fall [Unknown]
  - Fatigue [Unknown]
  - Head injury [Unknown]
  - Injury [Unknown]
  - Mental disorder [Unknown]
  - Memory impairment [Unknown]
  - Osteoarthritis [Unknown]
  - Pain [Unknown]
  - Paranoia [Unknown]
  - Performance status decreased [Unknown]
  - Schizoaffective disorder [Unknown]
  - Somnolence [Unknown]
  - Swelling [Unknown]
  - Thinking abnormal [Unknown]
  - Thirst [Unknown]
  - Unevaluable event [Unknown]
  - Weight increased [Unknown]
  - Prescribed overdose [Unknown]
  - Wrong technique in product usage process [Unknown]

NARRATIVE: CASE EVENT DATE: 20220601
